FAERS Safety Report 5754267-8 (Version None)
Quarter: 2008Q2

REPORT INFORMATION
  Report Type: 
  Country: None (occurrence: None)
  Receive Date: 20080530
  Receipt Date: 20080521
  Transmission Date: 20081010
  Serious: Yes (Hospitalization)
  Sender: FDA-Public Use
  Company Number: US-AMGEN-US281516

PATIENT
  Sex: Female
  Weight: 168.4 kg

DRUGS (7)
  1. ENBREL [Suspect]
     Indication: PSORIASIS
     Route: 058
     Dates: start: 20070918
  2. INFLUENZA VACCINE [Concomitant]
     Route: 065
     Dates: start: 20071215, end: 20071215
  3. VITAMIN TAB [Concomitant]
     Route: 048
     Dates: start: 20070918
  4. TRIAMCINOLONE [Concomitant]
     Route: 061
     Dates: start: 20070918, end: 20080506
  5. CLARITIN [Concomitant]
     Route: 048
     Dates: start: 20071218, end: 20080220
  6. UNSPECIFIED ANTIEMETIC [Concomitant]
     Route: 065
     Dates: start: 20080101
  7. UNSPECIFIED PAIN MEDICATION [Concomitant]
     Route: 065
     Dates: start: 20080101

REACTIONS (9)
  - DRUG EXPOSURE DURING PREGNANCY [None]
  - KIDNEY INFECTION [None]
  - MIGRAINE [None]
  - NASOPHARYNGITIS [None]
  - PREGNANCY [None]
  - RESPIRATORY TRACT INFECTION [None]
  - STREPTOCOCCAL INFECTION [None]
  - UTERINE CONTRACTIONS DURING PREGNANCY [None]
  - VULVOVAGINAL MYCOTIC INFECTION [None]
